FAERS Safety Report 9795085 (Version 1)
Quarter: 2014Q1

REPORT INFORMATION
  Report Type: Report from Study
  Country: US (occurrence: US)
  Receive Date: 20140103
  Receipt Date: 20140103
  Transmission Date: 20141002
  Serious: Yes (Other)
  Sender: FDA-Public Use
  Company Number: US-ROCHE-1324581

PATIENT
  Age: 68 Year
  Sex: Female

DRUGS (4)
  1. BEVACIZUMAB [Suspect]
     Indication: RETINAL VEIN OCCLUSION
     Dosage: 1.25 MG IN 0.05 ML
     Route: 050
  2. LEVOTHYROXINE [Concomitant]
  3. ATORVASTATIN [Concomitant]
  4. PREVACID [Concomitant]

REACTIONS (3)
  - Macular oedema [Unknown]
  - No therapeutic response [Unknown]
  - Off label use [Unknown]
